FAERS Safety Report 5799043-5 (Version None)
Quarter: 2008Q3

REPORT INFORMATION
  Report Type: 
  Country: None (occurrence: None)
  Receive Date: 20080701
  Receipt Date: 20080619
  Transmission Date: 20090109
  Serious: Yes (Other)
  Sender: FDA-Public Use
  Company Number: PAR_02237_2008

PATIENT
  Sex: Female

DRUGS (7)
  1. CLONAZEPAM [Suspect]
     Indication: DRUG USE FOR UNKNOWN INDICATION
     Dosage: (DF)
  2. REBIF [Suspect]
     Indication: MULTIPLE SCLEROSIS
     Dosage: ( 44 UG 3X/WEEK SUBCUTANEOUS)
     Route: 058
     Dates: start: 20070307
  3. LYRICA [Suspect]
     Indication: DRUG USE FOR UNKNOWN INDICATION
     Dosage: (DF)
  4. BACLOFEN [Suspect]
     Indication: DRUG USE FOR UNKNOWN INDICATION
     Dosage: (DF)
  5. CYMBALTA [Suspect]
     Indication: DRUG USE FOR UNKNOWN INDICATION
     Dosage: (DF)
  6. ASPIRIN [Concomitant]
  7. METOPROLOL [Concomitant]

REACTIONS (4)
  - CARDIAC ARREST [None]
  - GRAND MAL CONVULSION [None]
  - RESPIRATORY ARREST [None]
  - WITHDRAWAL SYNDROME [None]
